FAERS Safety Report 8135698-8 (Version None)
Quarter: 2012Q1

REPORT INFORMATION
  Report Type: 
  Country: None (occurrence: None)
  Receive Date: 20120214
  Receipt Date: 20120203
  Transmission Date: 20120608
  Serious: Yes (Other)
  Sender: FDA-Public Use
  Company Number: KR-SANOFI-AVENTIS-2012SA007257

PATIENT
  Age: 33 Year
  Sex: Female
  Weight: 48 kg

DRUGS (1)
  1. LANTUS [Suspect]
     Indication: DIABETES MELLITUS
     Dosage: DOSE:24 UNIT(S)
     Route: 058

REACTIONS (4)
  - HYPERGLYCAEMIA [None]
  - HYPOGLYCAEMIA [None]
  - DIZZINESS [None]
  - PANCREATITIS [None]
